FAERS Safety Report 7052054-4 (Version None)
Quarter: 2010Q4

REPORT INFORMATION
  Report Type: 
  Country: None (occurrence: None)
  Receive Date: 20101019
  Receipt Date: 20101013
  Transmission Date: 20110411
  Serious: Yes (Other)
  Sender: FDA-Public Use
  Company Number: US-GENZYME-THYM-1001922

PATIENT
  Age: 27 Year
  Sex: Male

DRUGS (4)
  1. THYMOGLOBULIN [Suspect]
     Indication: PROPHYLAXIS AGAINST TRANSPLANT REJECTION
     Dosage: UNK
  2. TACROLIMUS [Concomitant]
     Indication: IMMUNOSUPPRESSION
  3. MYCOPHENOLATE MOFETIL [Concomitant]
     Indication: IMMUNOSUPPRESSION
  4. CORTICOSTEROID NOS [Concomitant]
     Indication: IMMUNOSUPPRESSION

REACTIONS (5)
  - CYSTITIS GLANDULARIS [None]
  - HERPES ZOSTER [None]
  - NEPHRITIS [None]
  - RENAL CYST [None]
  - TRANSPLANT REJECTION [None]
